FAERS Safety Report 18944738 (Version 1)
Quarter: 2021Q1

REPORT INFORMATION
  Report Type: Spontaneous
  Country: US (occurrence: US)
  Receive Date: 20210226
  Receipt Date: 20210226
  Transmission Date: 20210420
  Serious: Yes (Other)
  Sender: FDA-Public Use
  Company Number: US-DRREDDYS-USA/USA/21/0132174

PATIENT
  Age: 30 Year
  Sex: Female

DRUGS (3)
  1. TESTOSTERONE CIPIONATE [Concomitant]
     Active Substance: TESTOSTERONE
     Indication: HORMONE THERAPY
  2. TESTOSTERONE CIPIONATE [Concomitant]
     Active Substance: TESTOSTERONE
     Indication: VIRILISM
  3. FINASTERIDE. [Suspect]
     Active Substance: FINASTERIDE
     Indication: HIDRADENITIS

REACTIONS (1)
  - Depression [Unknown]
